FAERS Safety Report 15516973 (Version 1)
Quarter: 2018Q4

REPORT INFORMATION
  Report Type: Spontaneous
  Country: US (occurrence: US)
  Receive Date: 20181017
  Receipt Date: 20181017
  Transmission Date: 20190205
  Serious: No
  Sender: FDA-Public Use
  Company Number: US-ALKERMES INC.-ALK-2018-005568

PATIENT
  Age: 4 Decade
  Sex: Female

DRUGS (1)
  1. VIVITROL [Suspect]
     Active Substance: NALTREXONE
     Indication: PRODUCT USED FOR UNKNOWN INDICATION
     Dosage: 380 MG, QMO
     Route: 030

REACTIONS (4)
  - Needle issue [Recovered/Resolved]
  - Injection site haemorrhage [Recovered/Resolved]
  - Product preparation issue [Recovered/Resolved]
  - Injection site reaction [Recovered/Resolved]
